FAERS Safety Report 4293941-X (Version None)
Quarter: 2004Q1

REPORT INFORMATION
  Report Type: 
  Country: None (occurrence: None)
  Receive Date: 20040210
  Receipt Date: 20040202
  Transmission Date: 20041129
  Serious: Yes (Other)
  Sender: FDA-Public Use
  Company Number: 000761

PATIENT
  Age: 30 Year
  Sex: Female
  Weight: 59 kg

DRUGS (1)
  1. CAMILA (NORETHINDRONE) TABLET, 0.35MG [Suspect]
     Indication: ORAL CONTRACEPTION
     Dosage: 1.00 TABLET, QD, ORAL
     Route: 048
     Dates: start: 20031101

REACTIONS (3)
  - RASH [None]
  - THROAT TIGHTNESS [None]
  - URTICARIA [None]
